FAERS Safety Report 7788350-2 (Version None)
Quarter: 2011Q3

REPORT INFORMATION
  Report Type: 
  Country: None (occurrence: None)
  Receive Date: 20110927
  Receipt Date: 20110916
  Transmission Date: 20111222
  Serious: Yes (Other)
  Sender: FDA-Public Use
  Company Number: AUR-APU-2011-05097

PATIENT
  Age: 29 Year
  Sex: Female

DRUGS (5)
  1. METHIMIZOLE (THIAMAZOLE) [Concomitant]
  2. PROPRANOLOL [Concomitant]
  3. PAROXETINE HCL [Suspect]
     Indication: ANXIETY
     Dosage: 20 MG (20 MG,AT NIGHT),ORAL
     Route: 048
     Dates: start: 20110101, end: 20110914
  4. OXYCODONE HCL [Concomitant]
  5. LORAZEPAM [Concomitant]

REACTIONS (2)
  - LOSS OF EMPLOYMENT [None]
  - DRUG SCREEN FALSE POSITIVE [None]
